FAERS Safety Report 16778724 (Version 2)
Quarter: 2019Q3

REPORT INFORMATION
  Report Type: Spontaneous
  Country: US (occurrence: US)
  Receive Date: 20190906
  Receipt Date: 20190913
  Transmission Date: 20191005
  Serious: Yes (Hospitalization, Other)
  Sender: FDA-Public Use
  Company Number: US-CIPLA LTD.-2019US06134

PATIENT

DRUGS (2)
  1. GABAPENTIN. [Suspect]
     Active Substance: GABAPENTIN
     Dosage: 100 MILLIGRAM, QD (MANUFACTURER CIPLA US)
     Route: 048
     Dates: start: 2019
  2. GABAPENTIN. [Suspect]
     Active Substance: GABAPENTIN
     Indication: NERVE COMPRESSION
     Dosage: 100 MILLIGRAM, QD, 6 WEEKS AGO (UNKNOWN MANUFACTURER)
     Route: 048
     Dates: start: 2019

REACTIONS (9)
  - Neuralgia [Unknown]
  - Palpitations [Unknown]
  - Headache [Unknown]
  - Delirium [Unknown]
  - Suicidal ideation [Unknown]
  - Dysphagia [Unknown]
  - Heart rate increased [Unknown]
  - Decreased appetite [Unknown]
  - Chest pain [Unknown]
